FAERS Safety Report 15758640 (Version 1)
Quarter: 2018Q4

REPORT INFORMATION
  Report Type: Spontaneous
  Country: IN (occurrence: IN)
  Receive Date: 20181225
  Receipt Date: 20181225
  Transmission Date: 20190205
  Serious: Yes (Other)
  Sender: FDA-Public Use
  Company Number: PHHY2018IN192202

PATIENT
  Age: 40 Year
  Sex: Male

DRUGS (1)
  1. OFATUMUMAB [Suspect]
     Active Substance: OFATUMUMAB
     Indication: B-CELL SMALL LYMPHOCYTIC LYMPHOMA
     Dosage: UNK UNK, QW
     Route: 065
     Dates: start: 2015, end: 201510

REACTIONS (8)
  - B-cell small lymphocytic lymphoma [Unknown]
  - Product use in unapproved indication [Unknown]
  - Asthenia [Unknown]
  - Hiccups [Unknown]
  - Malignant neoplasm progression [Unknown]
  - Hepatosplenomegaly [Unknown]
  - Dyspnoea [Unknown]
  - Abdominal discomfort [Unknown]

NARRATIVE: CASE EVENT DATE: 201602
